FAERS Safety Report 8618959-5 (Version None)
Quarter: 2012Q3

REPORT INFORMATION
  Report Type: 
  Country: None (occurrence: None)
  Receive Date: 20120824
  Receipt Date: 20120820
  Transmission Date: 20120928
  Serious: Yes (Hospitalization, Other)
  Sender: FDA-Public Use
  Company Number: PHHY2012NZ068187

PATIENT
  Sex: Female
  Weight: 96.6 kg

DRUGS (1)
  1. ZOLEDRONOC ACID [Suspect]
     Indication: OSTEOPOROSIS
     Dosage: 5 MG
     Route: 042
     Dates: start: 20110411

REACTIONS (5)
  - MALAISE [None]
  - DIARRHOEA [None]
  - CELLULITIS [None]
  - VOMITING [None]
  - GASTROENTERITIS [None]
